FAERS Safety Report 10294210 (Version 2)
Quarter: 2014Q3

REPORT INFORMATION
  Report Type: Spontaneous
  Country: DE (occurrence: DE)
  Receive Date: 20140710
  Receipt Date: 20140710
  Transmission Date: 20150326
  Serious: Yes (Other)
  Sender: FDA-Public Use
  Company Number: CHPA2014DE008058

PATIENT
  Age: 59 Year
  Sex: Male
  Weight: 90 kg

DRUGS (1)
  1. NICOTINELL [Suspect]
     Active Substance: NICOTINE
     Indication: SMOKING CESSATION THERAPY
     Dosage: UPTO 4 LOZENGES PER HOUR; UPTO 200 LOZENGES PER WEEK FOR APPROX 10 YEARS
     Route: 048

REACTIONS (6)
  - Abnormal behaviour [Unknown]
  - Drug abuse [Unknown]
  - Incorrect dose administered [Unknown]
  - Incorrect drug administration duration [Unknown]
  - Drug dependence [Unknown]
  - Nervousness [Unknown]
